FAERS Safety Report 22247064 (Version 1)
Quarter: 2023Q2

REPORT INFORMATION
  Report Type: Spontaneous
  Country: US (occurrence: US)
  Receive Date: 20230424
  Receipt Date: 20230424
  Transmission Date: 20230721
  Serious: No
  Sender: FDA-Public Use
  Company Number: US-SA-SAC20230418000021

PATIENT

DRUGS (1)
  1. LARONIDASE [Suspect]
     Active Substance: LARONIDASE
     Indication: Mucopolysaccharidosis I
     Dosage: 26.1 (UNITS UNKNOWN), QW
     Route: 042
     Dates: start: 20151124, end: 20230405

REACTIONS (2)
  - Weight gain poor [Unknown]
  - Vitamin D deficiency [Unknown]
